FAERS Safety Report 11340096 (Version 1)
Quarter: 2015Q3

REPORT INFORMATION
  Report Type: Spontaneous
  Country: US (occurrence: None)
  Receive Date: 20150730
  Receipt Date: 20150730
  Transmission Date: 20151125
  Serious: No
  Sender: FDA-Public Use
  Company Number: None

PATIENT
  Age: 70 Year
  Sex: Female

DRUGS (10)
  1. ALBUTEROL. [Concomitant]
     Active Substance: ALBUTEROL
  2. CLOPIDOGREL [Concomitant]
     Active Substance: CLOPIDOGREL BISULFATE
  3. GLIPIZIDE. [Concomitant]
     Active Substance: GLIPIZIDE
  4. AMILIORIDE [Suspect]
     Active Substance: AMILORIDE
     Indication: HYPERTENSION
     Route: 048
     Dates: end: 20150201
  5. ASA [Concomitant]
     Active Substance: ASPIRIN
  6. OXYBUTYNIN [Concomitant]
     Active Substance: OXYBUTYNIN
  7. ROSUVASTATIN [Concomitant]
     Active Substance: ROSUVASTATIN
  8. COLCHICINE. [Concomitant]
     Active Substance: COLCHICINE
  9. FUROSEMIDE. [Concomitant]
     Active Substance: FUROSEMIDE
  10. POTASSIUM CHLORIDE. [Suspect]
     Active Substance: POTASSIUM CHLORIDE
     Route: 048

REACTIONS (2)
  - Blood creatinine increased [None]
  - Hyperkalaemia [None]

NARRATIVE: CASE EVENT DATE: 20150201
